FAERS Safety Report 12737158 (Version 10)
Quarter: 2020Q3

REPORT INFORMATION
  Report Type: Report from Study
  Country: IT (occurrence: IT)
  Receive Date: 20160912
  Receipt Date: 20171009
  Transmission Date: 20201105
  Serious: Yes (Life-Threatening, Hospitalization)
  Sender: FDA-Public Use
  Company Number: IT-JNJFOC-20160908418

PATIENT
  Age: 63 Year
  Sex: Female

DRUGS (7)
  1. PAROXETINE. [Concomitant]
     Active Substance: PAROXETINE
     Indication: DEPRESSION
     Route: 048
     Dates: start: 2010
  2. OBINUTUZUMAB (INV) [Suspect]
     Active Substance: OBINUTUZUMAB
     Indication: CHRONIC LYMPHOCYTIC LEUKAEMIA
     Route: 042
     Dates: start: 20150625
  3. OMEPRAZOLE. [Concomitant]
     Active Substance: OMEPRAZOLE
     Indication: GASTROOESOPHAGEAL REFLUX DISEASE
     Route: 048
     Dates: start: 2013
  4. CANDESARTAN. [Concomitant]
     Active Substance: CANDESARTAN
     Indication: HYPERTENSION
     Route: 048
     Dates: start: 2010
  5. IBRUTINIB [Suspect]
     Active Substance: IBRUTINIB
     Indication: CHRONIC LYMPHOCYTIC LEUKAEMIA
     Route: 048
     Dates: start: 20150625, end: 20160811
  6. METFORMIN [Concomitant]
     Active Substance: METFORMIN HYDROCHLORIDE
     Indication: TYPE 2 DIABETES MELLITUS
     Route: 048
     Dates: start: 2011
  7. IBRUTINIB [Suspect]
     Active Substance: IBRUTINIB
     Route: 048

REACTIONS (2)
  - Atrial tachycardia [Recovered/Resolved]
  - Atrial tachycardia [Recovered/Resolved]

NARRATIVE: CASE EVENT DATE: 20160901
